FAERS Safety Report 14581299 (Version 1)
Quarter: 2018Q1

REPORT INFORMATION
  Report Type: Report from Study
  Country: JP (occurrence: JP)
  Receive Date: 20180228
  Receipt Date: 20180228
  Transmission Date: 20180509
  Serious: Yes (Other)
  Sender: FDA-Public Use
  Company Number: JP-TEVA-2018-JP-862122

PATIENT
  Age: 28 Year
  Sex: Female

DRUGS (4)
  1. L ESTROGEL [Concomitant]
     Dosage: 6 DOSAGE FORMS DAILY;
     Route: 062
     Dates: start: 20171012, end: 20171208
  2. JULINA [Concomitant]
     Active Substance: ESTRADIOL
     Indication: PROGESTIN REPLACEMENT THERAPY
     Dosage: 4 DOSAGE FORMS DAILY;
     Route: 048
     Dates: start: 20171027, end: 20171208
  3. BUFFERIN [Concomitant]
     Active Substance: ASPIRIN
     Dosage: 1 DOSAGE FORMS DAILY;
     Route: 048
     Dates: start: 20171027, end: 20171208
  4. LUTEUM VAGINAL SUPPOSITORY 400MG [Suspect]
     Active Substance: PROGESTERONE
     Indication: PROGESTIN REPLACEMENT THERAPY
     Dosage: 800 MILLIGRAM DAILY;
     Route: 067
     Dates: start: 20171027, end: 20171116

REACTIONS (1)
  - Genital haemorrhage [Recovered/Resolved]

NARRATIVE: CASE EVENT DATE: 20171115
